FAERS Safety Report 7051366-8 (Version None)
Quarter: 2010Q4

REPORT INFORMATION
  Report Type: 
  Country: None (occurrence: None)
  Receive Date: 20101018
  Receipt Date: 20101018
  Transmission Date: 20110411
  Serious: No
  Sender: FDA-Public Use
  Company Number: None

PATIENT
  Age: 55 Year
  Sex: Female
  Weight: 112.0385 kg

DRUGS (1)
  1. REDI-CAT BARIUM SULFATE [Suspect]
     Indication: COMPUTERISED TOMOGRAM
     Dosage: 1/2 NIGHT BEFORE TEST 1/2 DAY OF TEST P.O.
     Route: 048
     Dates: start: 20100927

REACTIONS (2)
  - ABDOMINAL PAIN [None]
  - DIARRHOEA [None]
